FAERS Safety Report 4551853-8 (Version None)
Quarter: 2005Q1

REPORT INFORMATION
  Report Type: 
  Country: None (occurrence: None)
  Receive Date: 20050111
  Receipt Date: 20041229
  Transmission Date: 20050727
  Serious: Yes (Hospitalization)
  Sender: FDA-Public Use
  Company Number: HQWYE647624JUN04

PATIENT
  Age: 4 Year
  Sex: Male

DRUGS (2)
  1. CHILDREN'S ADVIL [Suspect]
     Indication: PYREXIA
     Dosage: ORAL
     Route: 048
     Dates: start: 20040512, end: 20040515
  2. CHILDREN'S ADVIL [Suspect]
     Indication: VARICELLA
     Dosage: ORAL
     Route: 048
     Dates: start: 20040512, end: 20040515

REACTIONS (12)
  - DEPRESSED LEVEL OF CONSCIOUSNESS [None]
  - DISSEMINATED INTRAVASCULAR COAGULATION [None]
  - HAEMODYNAMIC INSTABILITY [None]
  - HAEMOGLOBIN DECREASED [None]
  - NECROTISING FASCIITIS [None]
  - PLATELET COUNT DECREASED [None]
  - POST PROCEDURAL COMPLICATION [None]
  - PROTHROMBIN TIME PROLONGED [None]
  - SKIN GRAFT [None]
  - SKIN HYPERTROPHY [None]
  - STREPTOCOCCAL INFECTION [None]
  - SUPERINFECTION [None]
